FAERS Safety Report 12282442 (Version 2)
Quarter: 2017Q1

REPORT INFORMATION
  Report Type: Report from Study
  Country: US (occurrence: US)
  Receive Date: 20160419
  Receipt Date: 20170308
  Transmission Date: 20170428
  Serious: Yes (Death, Hospitalization, Other)
  Sender: FDA-Public Use
  Company Number: US-BAYER-2015-423864

PATIENT
  Age: 67 Year
  Sex: Female
  Weight: 58.05 kg

DRUGS (6)
  1. FLOLAN [EPOPROSTENOL] [Concomitant]
     Dosage: UNK
  2. ADEMPAS [Suspect]
     Active Substance: RIOCIGUAT
     Indication: PULMONARY ARTERIAL HYPERTENSION
     Dosage: 1.5 MG, TID
     Route: 048
  3. ADEMPAS [Suspect]
     Active Substance: RIOCIGUAT
     Indication: PULMONARY ARTERIAL HYPERTENSION
     Dosage: 2.5 MG, TID
     Route: 048
  4. ADEMPAS [Suspect]
     Active Substance: RIOCIGUAT
     Indication: PULMONARY ARTERIAL HYPERTENSION
     Dosage: UNK
     Route: 048
     Dates: start: 20150804
  5. LETAIRIS [Concomitant]
     Active Substance: AMBRISENTAN
     Dosage: 5 MG, QD
     Dates: start: 20140807
  6. ADEMPAS [Suspect]
     Active Substance: RIOCIGUAT
     Indication: PULMONARY ARTERIAL HYPERTENSION
     Dosage: 1 MG, TID
     Route: 048

REACTIONS (12)
  - Clostridium difficile infection [Recovering/Resolving]
  - Clostridium difficile infection [None]
  - Death [Fatal]
  - Diarrhoea [None]
  - Pneumonia [Recovering/Resolving]
  - Dyspnoea [Unknown]
  - Erythema [Unknown]
  - Drug ineffective [Unknown]
  - Retinal detachment [None]
  - Septic shock [Recovering/Resolving]
  - Oedema [None]
  - Weight increased [None]

NARRATIVE: CASE EVENT DATE: 20150902
